FAERS Safety Report 4555828-4 (Version None)
Quarter: 2005Q1

REPORT INFORMATION
  Report Type: 
  Country: None (occurrence: None)
  Receive Date: 20050118
  Receipt Date: 20040719
  Transmission Date: 20050727
  Serious: No
  Sender: FDA-Public Use
  Company Number: A001-002-006148

PATIENT
  Age: 81 Year
  Sex: Female
  Weight: 54.4316 kg

DRUGS (3)
  1. ARICEPT [Suspect]
     Indication: AMNESIA
     Dosage: 10 MG, 1 IN 1 D, ORAL
     Route: 048
     Dates: start: 20031201
  2. ARICEPT [Suspect]
     Indication: PROPHYLAXIS
     Dosage: 10 MG, 1 IN 1 D, ORAL
     Route: 048
     Dates: start: 20031201
  3. LOVASTATIN [Concomitant]

REACTIONS (2)
  - CONVULSION [None]
  - TRANSIENT ISCHAEMIC ATTACK [None]
